FAERS Safety Report 13608467 (Version 1)
Quarter: 2017Q2

REPORT INFORMATION
  Report Type: Spontaneous
  Country: US (occurrence: US)
  Receive Date: 20170602
  Receipt Date: 20170602
  Transmission Date: 20170830
  Serious: Yes (Other)
  Sender: FDA-Public Use
  Company Number: US-JNJFOC-20170600067

PATIENT
  Age: 68 Year
  Sex: Male
  Weight: 170.55 kg

DRUGS (19)
  1. XARELTO [Suspect]
     Active Substance: RIVAROXABAN
     Indication: PRODUCT USED FOR UNKNOWN INDICATION
     Route: 048
  2. LEVOTHYROXINE SODIUM. [Concomitant]
     Active Substance: LEVOTHYROXINE SODIUM
     Route: 048
  3. GLIMEPIRIDE. [Concomitant]
     Active Substance: GLIMEPIRIDE
     Dosage: 1 TABLET IN THE MORNING
     Route: 048
  4. METFORMIN HCL [Concomitant]
     Active Substance: METFORMIN HYDROCHLORIDE
     Dosage: ONE TABLET BY MOUTH AT EVENING MEAL
     Route: 048
  5. FINASTERIDE. [Concomitant]
     Active Substance: FINASTERIDE
     Route: 048
  6. NOVOLIN R [Concomitant]
     Active Substance: INSULIN HUMAN
     Dosage: 100 UNITS/ML INJECTION, TAKE 45 - 53 UNITS BEFORE EACH MEAL
     Route: 065
  7. VITAMIN D3 [Concomitant]
     Active Substance: CHOLECALCIFEROL
     Dosage: 3 TABLETS
     Route: 048
  8. HYDRALAZINE HCL [Concomitant]
     Active Substance: HYDRALAZINE HYDROCHLORIDE
     Dosage: 1 1/2 TABLET
     Route: 048
  9. PAROXETINE HCL [Concomitant]
     Active Substance: PAROXETINE HYDROCHLORIDE
     Route: 048
  10. OMEPRAZOLE. [Concomitant]
     Active Substance: OMEPRAZOLE
     Route: 048
  11. PRIMIDONE. [Concomitant]
     Active Substance: PRIMIDONE
     Route: 048
  12. FISH OIL [Concomitant]
     Active Substance: FISH OIL
     Dosage: 1000 MG CAPSULE 1 ORAL DAILY
     Route: 048
  13. GABAPENTIN. [Concomitant]
     Active Substance: GABAPENTIN
     Route: 048
  14. LASIX [Concomitant]
     Active Substance: FUROSEMIDE
     Route: 048
  15. OXYBUTYNIN CHLORIDE. [Concomitant]
     Active Substance: OXYBUTYNIN CHLORIDE
     Dosage: 5MG/ML TAKE ONE SPOON BY MOUTH
     Route: 048
  16. LANTUS [Concomitant]
     Active Substance: INSULIN GLARGINE
     Dosage: 100 UNITS/1 ML INJECTION
     Route: 065
  17. CAPTOPRIL. [Concomitant]
     Active Substance: CAPTOPRIL
     Route: 048
  18. RANITIDINE. [Concomitant]
     Active Substance: RANITIDINE
     Route: 048
  19. ASPIRIN. [Concomitant]
     Active Substance: ASPIRIN
     Route: 048

REACTIONS (4)
  - Arrhythmia [Unknown]
  - Diabetic neuropathy [Unknown]
  - Skin ulcer [Unknown]
  - Oedema peripheral [Unknown]

NARRATIVE: CASE EVENT DATE: 20170510
